FAERS Safety Report 11895099 (Version 3)
Quarter: 2016Q1

REPORT INFORMATION
  Report Type: Spontaneous
  Country: US (occurrence: US)
  Receive Date: 20160107
  Receipt Date: 20160309
  Transmission Date: 20160526
  Serious: Yes (Hospitalization)
  Sender: FDA-Public Use
  Company Number: US-PFIZER INC-2015439072

PATIENT
  Age: 72 Year
  Sex: Female
  Weight: 70.31 kg

DRUGS (5)
  1. TOPROL XL [Concomitant]
     Active Substance: METOPROLOL SUCCINATE
     Dosage: 20 MG, UNK
  2. CRESTOR [Suspect]
     Active Substance: ROSUVASTATIN CALCIUM
     Dosage: 10 MG, UNK
     Dates: start: 2014
  3. ATORVASTATIN CALCIUM. [Suspect]
     Active Substance: ATORVASTATIN CALCIUM
     Indication: BLOOD CHOLESTEROL ABNORMAL
     Dosage: 20 MG, 1X/DAY
     Route: 048
     Dates: start: 2010, end: 201504
  4. CRESTOR [Suspect]
     Active Substance: ROSUVASTATIN CALCIUM
     Dosage: 40 MG, UNK
  5. TOPROL XL [Concomitant]
     Active Substance: METOPROLOL SUCCINATE
     Indication: HYPERTENSION
     Dosage: 10 MG, 1X/DAY
     Dates: start: 2010

REACTIONS (3)
  - Drug ineffective [Not Recovered/Not Resolved]
  - Musculoskeletal pain [Not Recovered/Not Resolved]
  - Bone disorder [Not Recovered/Not Resolved]

NARRATIVE: CASE EVENT DATE: 2015
